FAERS Safety Report 4424533-7 (Version None)
Quarter: 2004Q3

REPORT INFORMATION
  Report Type: 
  Country: None (occurrence: None)
  Receive Date: 20040812
  Receipt Date: 20040811
  Transmission Date: 20050211
  Serious: Yes (Death, Hospitalization)
  Sender: FDA-Public Use
  Company Number: DE-BRISTOL-MYERS SQUIBB COMPANY-12667036

PATIENT
  Age: 69 Year
  Sex: Male

DRUGS (6)
  1. TAXOL [Suspect]
     Indication: SMALL CELL LUNG CANCER STAGE UNSPECIFIED
     Dosage: START DATE:  07-JUN-2004.
     Route: 042
     Dates: start: 20040725, end: 20040725
  2. CARBOPLATIN [Suspect]
     Indication: SMALL CELL LUNG CANCER STAGE UNSPECIFIED
     Dosage: START DATE: 07-JUN-2004
     Route: 042
     Dates: start: 20040725, end: 20040725
  3. ETOPOSIDE [Suspect]
     Indication: SMALL CELL LUNG CANCER STAGE UNSPECIFIED
     Route: 042
     Dates: start: 20040725, end: 20040725
  4. MORONAL [Concomitant]
     Dates: start: 20040725, end: 20040730
  5. CONCOR [Concomitant]
     Dates: end: 20040730
  6. ESIDRIX [Concomitant]
     Dates: end: 20040730

REACTIONS (4)
  - DEATH [None]
  - DIARRHOEA [None]
  - NEUTROPENIA [None]
  - VOMITING [None]
